FAERS Safety Report 9455438 (Version 5)
Quarter: 2013Q4

REPORT INFORMATION
  Report Type: Report from Study
  Country: CA (occurrence: CA)
  Receive Date: 20130813
  Receipt Date: 20131021
  Transmission Date: 20140711
  Serious: Yes (Hospitalization, Other)
  Sender: FDA-Public Use
  Company Number: PHHY2013CA019545

PATIENT
  Age: 47 Year
  Sex: Male

DRUGS (2)
  1. SANDOSTATIN LAR [Suspect]
     Indication: METASTATIC CARCINOID TUMOUR
     Dosage: 40 MG, EVERY 4 WEEKS
     Route: 030
     Dates: start: 20081201
  2. SANDOSTATIN LAR [Suspect]
     Indication: NEUROENDOCRINE TUMOUR
     Dosage: 40 MG, EVERY 2 WEEKS
     Route: 030

REACTIONS (8)
  - Hypokalaemia [Unknown]
  - Diarrhoea [Unknown]
  - Weight decreased [Unknown]
  - Blood pressure increased [Unknown]
  - Oedema peripheral [Unknown]
  - Wound [Unknown]
  - Heart rate increased [Unknown]
  - Heart rate irregular [Unknown]
